FAERS Safety Report 6599528-8 (Version None)
Quarter: 2010Q1

REPORT INFORMATION
  Report Type: 
  Country: None (occurrence: None)
  Receive Date: 20100224
  Receipt Date: 20100219
  Transmission Date: 20100710
  Serious: Yes (Hospitalization)
  Sender: FDA-Public Use
  Company Number: JP-ROCHE-681485

PATIENT
  Sex: Male
  Weight: 49.3 kg

DRUGS (5)
  1. BLINDED IBANDRONIC ACID [Suspect]
     Indication: OSTEOPOROSIS
     Dosage: BLINDED STUDY
     Route: 042
     Dates: start: 20080618, end: 20091216
  2. BLINDED RISEDRONIC ACID [Suspect]
     Indication: OSTEOPOROSIS
     Route: 048
     Dates: start: 20080618, end: 20100120
  3. VITAMIN D3 [Concomitant]
     Dosage: DRUG NAME: VD3/CA, NOTE: CA 305 MG AND VD3 200IU/DAY.
     Route: 048
     Dates: start: 20080618, end: 20100119
  4. KETOPROFEN [Concomitant]
     Dosage: DRUG NAME: MOHRUS TAPE(KETOPROFEN), DOSE FORM: TAPE, NOTE: SINGLE USE
     Route: 061
     Dates: start: 20090317
  5. INTEBAN [Concomitant]
     Dosage: DOSE FORM: OINTMENT AND CREAM.  NOTE: SINGLE USE
     Route: 061
     Dates: start: 20081015

REACTIONS (1)
  - DUODENITIS HAEMORRHAGIC [None]
